FAERS Safety Report 7421742-X (Version None)
Quarter: 2011Q2

REPORT INFORMATION
  Report Type: 
  Country: None (occurrence: None)
  Receive Date: 20110418
  Receipt Date: 20101216
  Transmission Date: 20111010
  Serious: Yes (Other)
  Sender: FDA-Public Use
  Company Number: US-US-EMD SERONO, INC.-7029687

PATIENT
  Age: 6 Year
  Sex: Male

DRUGS (2)
  1. RECOMBINANT HUMAN GROWTH HORMONE (RHGH) [Suspect]
     Indication: GROWTH HORMONE DEFICIENCY
  2. PROPRANOLOL [Concomitant]
     Indication: PRODUCT USED FOR UNKNOWN INDICATION

REACTIONS (1)
  - HYPERTROPHIC CARDIOMYOPATHY [None]
